FAERS Safety Report 21805865 (Version 1)
Quarter: 2023Q1

REPORT INFORMATION
  Report Type: Spontaneous
  Country: US (occurrence: US)
  Receive Date: 20230102
  Receipt Date: 20230102
  Transmission Date: 20230417
  Serious: No
  Sender: FDA-Public Use
  Company Number: US-BRISTOL-MYERS SQUIBB COMPANY-2023-000084

PATIENT
  Age: 75 Year
  Sex: Female
  Weight: 62.14 kg

DRUGS (1)
  1. REVLIMID [Suspect]
     Active Substance: LENALIDOMIDE
     Indication: Myelodysplastic syndrome
     Dosage: 3W, 1W OFF
     Route: 048
     Dates: start: 20211210

REACTIONS (1)
  - Diarrhoea [Unknown]
